FAERS Safety Report 7250678-2 (Version None)
Quarter: 2011Q1

REPORT INFORMATION
  Report Type: 
  Country: None (occurrence: None)
  Receive Date: 20110128
  Receipt Date: 20110125
  Transmission Date: 20110831
  Serious: Yes (Life-Threatening, Hospitalization, Disabling, Other)
  Sender: FDA-Public Use
  Company Number: PHHY2010US84106

PATIENT
  Age: 74 Year
  Sex: Female
  Weight: 71.36 kg

DRUGS (3)
  1. RECLAST [Suspect]
     Dosage: 5 MG, UNK
     Route: 042
     Dates: start: 20101123
  2. RECLAST [Suspect]
     Indication: OSTEOPOROSIS
     Dosage: 5 MG, UNK
     Dates: start: 20090601
  3. VITAMIN D [Concomitant]
     Dosage: UNK

REACTIONS (7)
  - BLOOD CREATININE INCREASED [None]
  - PAIN [None]
  - TUBULOINTERSTITIAL NEPHRITIS [None]
  - CONFUSIONAL STATE [None]
  - URINE OUTPUT DECREASED [None]
  - RENAL FAILURE ACUTE [None]
  - LETHARGY [None]
